FAERS Safety Report 4775538-8 (Version None)
Quarter: 2005Q3

REPORT INFORMATION
  Report Type: 
  Country: None (occurrence: None)
  Receive Date: 20050920
  Receipt Date: 20050920
  Transmission Date: 20060218
  Serious: Yes (Life-Threatening, Other)
  Sender: FDA-Public Use
  Company Number: None

PATIENT
  Age: 57 Year
  Sex: Female
  Weight: 78.4723 kg

DRUGS (2)
  1. DECONSAL II (GUAIFENESIN W/PSEUDOEPHEDRINE) [Suspect]
     Indication: RESPIRATORY DISORDER
     Dosage: 600/60 TWICE A DAY [5+ YRS]
  2. DECONSAL II (GUAIFENESIN W/PSEUDOEPHEDRINE) NEW MANUFACTURER/CAROLINA [Suspect]
     Indication: RESPIRATORY DISORDER
     Dosage: 20/375 TWICE A DAY  [20+ DAYS]

REACTIONS (15)
  - ACTIVITIES OF DAILY LIVING IMPAIRED [None]
  - CHEST PAIN [None]
  - CHRONIC OBSTRUCTIVE PULMONARY DISEASE [None]
  - DIZZINESS [None]
  - DYSPNOEA [None]
  - DYSPNOEA EXERTIONAL [None]
  - FATIGUE [None]
  - FEELING HOT [None]
  - HYPERHIDROSIS [None]
  - MALAISE [None]
  - PALPITATIONS [None]
  - PHARMACEUTICAL PRODUCT COMPLAINT [None]
  - RESPIRATORY TRACT INFECTION [None]
  - THIRST [None]
  - TREMOR [None]
